FAERS Safety Report 8391079-3 (Version None)
Quarter: 2012Q2

REPORT INFORMATION
  Report Type: 
  Country: None (occurrence: None)
  Receive Date: 20120521
  Receipt Date: 20120514
  Transmission Date: 20120825
  Serious: Yes (Death, Life-Threatening, Other)
  Sender: FDA-Public Use
  Company Number: 2011SP056505

PATIENT
  Age: 48 Year
  Sex: Male

DRUGS (8)
  1. SILECE [Concomitant]
  2. LENDORMIN [Concomitant]
  3. MIRTAZAPINE [Suspect]
     Indication: DEPRESSION
     Dosage: 15 MG;QD;PO ; 30 MG;QD;PO ; 45 MG;QD;PO ; 30 MG;QD;PO
     Route: 048
     Dates: start: 20110521, end: 20110524
  4. MIRTAZAPINE [Suspect]
     Indication: DEPRESSION
     Dosage: 15 MG;QD;PO ; 30 MG;QD;PO ; 45 MG;QD;PO ; 30 MG;QD;PO
     Route: 048
     Dates: start: 20110525, end: 20110605
  5. MIRTAZAPINE [Suspect]
     Indication: DEPRESSION
     Dosage: 15 MG;QD;PO ; 30 MG;QD;PO ; 45 MG;QD;PO ; 30 MG;QD;PO
     Route: 048
     Dates: start: 20110606, end: 20110612
  6. MIRTAZAPINE [Suspect]
     Indication: DEPRESSION
     Dosage: 15 MG;QD;PO ; 30 MG;QD;PO ; 45 MG;QD;PO ; 30 MG;QD;PO
     Route: 048
     Dates: start: 20110613, end: 20110809
  7. TRAZODONE HCL [Concomitant]
  8. LORAZEPAM [Concomitant]

REACTIONS (3)
  - COMPLETED SUICIDE [None]
  - SUICIDE ATTEMPT [None]
  - DRUG ERUPTION [None]
